FAERS Safety Report 10045179 (Version 1)
Quarter: 2014Q1

REPORT INFORMATION
  Report Type: Spontaneous
  Country: US (occurrence: None)
  Receive Date: 20140306
  Receipt Date: 20140306
  Transmission Date: 20141002
  Serious: Yes (Other)
  Sender: FDA-Public Use
  Company Number: 163-21880-13052941

PATIENT
  Age: 65 Year
  Sex: Male
  Weight: 90.7 kg

DRUGS (7)
  1. REVLIMID [Suspect]
     Indication: PLASMA CELL MYELOMA
     Route: 048
     Dates: start: 201101
  2. CARIFILZOMIB (CARIFILZOMIB) (UNKNOWN) [Concomitant]
  3. POTASSIUM CHLORIDE (POTASSIUM CHLORIDE) [Concomitant]
  4. FOLIC ACID (FOLIC ACID) [Concomitant]
  5. ALLOPURINOL (ALLOPURINOL) [Concomitant]
  6. METOPROLOL (METOPROLOL) [Concomitant]
  7. OMEPRAZOLE (OMEPRAZOLE) [Concomitant]

REACTIONS (2)
  - White blood cell count [None]
  - Platelet count decreased [None]
